FAERS Safety Report 24071778 (Version 1)
Quarter: 2024Q3

REPORT INFORMATION
  Report Type: Report from Study
  Country: US (occurrence: US)
  Receive Date: 20240710
  Receipt Date: 20240710
  Transmission Date: 20241017
  Serious: No
  Sender: ROCHE
  Company Number: US-ROCHE-3536946

PATIENT
  Age: 10 Year
  Sex: Female
  Weight: 48.0 kg

DRUGS (1)
  1. EVRYSDI [Suspect]
     Active Substance: RISDIPLAM
     Indication: Spinal muscular atrophy
     Route: 048
     Dates: start: 20240309

REACTIONS (7)
  - Fatigue [Recovering/Resolving]
  - Headache [Recovering/Resolving]
  - Fall [Unknown]
  - Pyrexia [Unknown]
  - Mouth ulceration [Unknown]
  - Malaise [Unknown]
  - Oropharyngeal pain [Unknown]

NARRATIVE: CASE EVENT DATE: 20240330
